FAERS Safety Report 16272026 (Version 2)
Quarter: 2019Q2

REPORT INFORMATION
  Report Type: Report from Study
  Country: ZA (occurrence: ZA)
  Receive Date: 20190503
  Receipt Date: 20190517
  Transmission Date: 20190711
  Serious: Yes (Life-Threatening)
  Sender: FDA-Public Use
  Company Number: ZA-SA-2019SA121151

PATIENT
  Age: 64 Year
  Sex: Female

DRUGS (5)
  1. INSULIN GLULISINE [Suspect]
     Active Substance: INSULIN GLULISINE
     Dosage: BEFORE SUPPER- 13 U, BEFORE LUNCH- 13 U, BEFORE BREAKFAST- 13 U, TID
     Dates: start: 20190221
  2. OPTISULIN (INSULIN GLARGINE) [Suspect]
     Active Substance: INSULIN GLARGINE
     Dosage: BED TIME- 40 U, HS
     Dates: start: 20190221
  3. METFORMIN [Concomitant]
     Active Substance: METFORMIN HYDROCHLORIDE
     Dosage: AFTER SUPPER- 850 MG, AFTER BREAKFAST- 850 MG, BID
     Dates: start: 19900220
  4. LYRICA [Concomitant]
     Active Substance: PREGABALIN
     Dosage: 75 MG, HS
     Dates: start: 20160220
  5. TREPILINE [AMITRIPTYLINE] [Concomitant]
     Active Substance: AMITRIPTYLINE
     Dosage: BEFORE BREAKFAST- 10 U, QD
     Dates: start: 20190101

REACTIONS (5)
  - Malaise [Unknown]
  - Blood glucose abnormal [Not Recovered/Not Resolved]
  - Pyrexia [Not Recovered/Not Resolved]
  - Glycosylated haemoglobin increased [Unknown]
  - Furuncle [Not Recovered/Not Resolved]
